FAERS Safety Report 7788339-3 (Version None)
Quarter: 2011Q3

REPORT INFORMATION
  Report Type: 
  Country: None (occurrence: None)
  Receive Date: 20110927
  Receipt Date: 20110912
  Transmission Date: 20111222
  Serious: Yes (Other)
  Sender: FDA-Public Use
  Company Number: 1000024025

PATIENT
  Age: 90 Year
  Sex: Female

DRUGS (10)
  1. MICOMBI AP (TELMISARTAN, HYDROCHLOROTHIAZIDE)(TELMISARTAN, HYDROCHLORO [Concomitant]
  2. DIURETICS (DIURETICS) [Suspect]
  3. MEMANTINE [Suspect]
     Indication: DEMENTIA ALZHEIMER'S TYPE
     Dosage: ORAL
     Route: 048
     Dates: start: 20110612, end: 20110627
  4. MEMANTINE [Suspect]
     Indication: BEHAVIOURAL AND PSYCHIATRIC SYMPTOMS OF DEMENTIA
     Dosage: ORAL
     Route: 048
     Dates: start: 20110612, end: 20110627
  5. MEMANTINE [Suspect]
     Indication: DEMENTIA ALZHEIMER'S TYPE
     Dosage: 20 MG (20 MG, 1 IN 1 D),ORAL, 15 MG (15 MG,1 IN 1 D),ORAL
     Route: 048
     Dates: start: 20110628, end: 20110807
  6. MEMANTINE [Suspect]
     Indication: BEHAVIOURAL AND PSYCHIATRIC SYMPTOMS OF DEMENTIA
     Dosage: 20 MG (20 MG, 1 IN 1 D),ORAL, 15 MG (15 MG,1 IN 1 D),ORAL
     Route: 048
     Dates: start: 20110628, end: 20110807
  7. MEMANTINE [Suspect]
     Indication: DEMENTIA ALZHEIMER'S TYPE
     Dosage: 20 MG (20 MG, 1 IN 1 D),ORAL, 15 MG (15 MG,1 IN 1 D),ORAL
     Route: 048
     Dates: start: 20110808, end: 20110811
  8. MEMANTINE [Suspect]
     Indication: BEHAVIOURAL AND PSYCHIATRIC SYMPTOMS OF DEMENTIA
     Dosage: 20 MG (20 MG, 1 IN 1 D),ORAL, 15 MG (15 MG,1 IN 1 D),ORAL
     Route: 048
     Dates: start: 20110808, end: 20110811
  9. DEPAKENE-R (VALPROATE SODIUM)(VALPROATE SODIUM) [Concomitant]
  10. ARICEPT [Concomitant]

REACTIONS (13)
  - ATAXIA [None]
  - DIZZINESS [None]
  - HAEMOGLOBIN DECREASED [None]
  - ABASIA [None]
  - BEHAVIOURAL AND PSYCHIATRIC SYMPTOMS OF DEMENTIA [None]
  - AGGRESSION [None]
  - DRUG LEVEL INCREASED [None]
  - ABNORMAL BEHAVIOUR [None]
  - SOMNOLENCE [None]
  - AGITATION [None]
  - BLOOD PRESSURE DECREASED [None]
  - RED BLOOD CELL COUNT DECREASED [None]
  - BLOOD CREATININE INCREASED [None]
